FAERS Safety Report 5531173-5 (Version None)
Quarter: 2007Q4

REPORT INFORMATION
  Report Type: 
  Country: None (occurrence: None)
  Receive Date: 20071130
  Receipt Date: 20071123
  Transmission Date: 20080405
  Serious: Yes (Other)
  Sender: FDA-Public Use
  Company Number: US-PFIZER INC-2007099202

PATIENT
  Sex: Female
  Weight: 68.181 kg

DRUGS (1)
  1. CHANTIX [Suspect]
     Indication: SMOKING CESSATION THERAPY
     Dates: start: 20071112, end: 20071123

REACTIONS (10)
  - AGGRESSION [None]
  - ANGER [None]
  - HOMICIDAL IDEATION [None]
  - MOOD SWINGS [None]
  - NAUSEA [None]
  - NIGHTMARE [None]
  - PERSONALITY CHANGE [None]
  - SLEEP DISORDER [None]
  - SUICIDAL IDEATION [None]
  - TREMOR [None]
